FAERS Safety Report 5973602-9 (Version None)
Quarter: 2008Q4

REPORT INFORMATION
  Report Type: 
  Country: None (occurrence: None)
  Receive Date: 20081201
  Receipt Date: 20081118
  Transmission Date: 20090506
  Serious: Yes (Other)
  Sender: FDA-Public Use
  Company Number: BE-ELI_LILLY_AND_COMPANY-BE200811004557

PATIENT
  Age: 49 Year
  Sex: Female

DRUGS (5)
  1. CYMBALTA [Suspect]
  2. TOPAMAX [Concomitant]
  3. ISOPTIN [Concomitant]
  4. OMEPRAZOLE [Concomitant]
  5. DAFALGAN [Concomitant]

REACTIONS (1)
  - HYPERPROLACTINAEMIA [None]
